FAERS Safety Report 21382070 (Version 1)
Quarter: 2022Q3

REPORT INFORMATION
  Report Type: Spontaneous
  Country: US (occurrence: None)
  Receive Date: 20220926
  Receipt Date: 20220926
  Transmission Date: 20221026
  Serious: Yes (Disabling, Other)
  Sender: FDA-Public Use
  Company Number: None

PATIENT
  Age: 16 Year
  Sex: Female
  Weight: 72 kg

DRUGS (1)
  1. JUNEL FE 1/20 [Suspect]
     Active Substance: ETHINYL ESTRADIOL\NORETHINDRONE ACETATE
     Indication: Heavy menstrual bleeding
     Dosage: OTHER QUANTITY : 28 TABLET(S);?FREQUENCY : DAILY;?
     Route: 048
     Dates: start: 20220711, end: 20220803

REACTIONS (2)
  - Depression [None]
  - Depressed mood [None]

NARRATIVE: CASE EVENT DATE: 20220711
